APPROVED DRUG PRODUCT: LAMOTRIGINE
Active Ingredient: LAMOTRIGINE
Strength: 150MG
Dosage Form/Route: TABLET;ORAL
Application: A090170 | Product #003 | TE Code: AB
Applicant: UNICHEM LABORATORIES LTD
Approved: Oct 6, 2011 | RLD: No | RS: No | Type: RX